FAERS Safety Report 16202598 (Version 1)
Quarter: 2019Q2

REPORT INFORMATION
  Report Type: Spontaneous
  Country: US (occurrence: US)
  Receive Date: 20190416
  Receipt Date: 20190416
  Transmission Date: 20190711
  Serious: No
  Sender: FDA-Public Use
  Company Number: US-PFIZER INC-2019160531

PATIENT
  Age: 50 Year
  Sex: Male
  Weight: 113.4 kg

DRUGS (2)
  1. DILANTIN [Suspect]
     Active Substance: PHENYTOIN
     Dosage: 100 MG, 3X/DAY
  2. DILANTIN [Suspect]
     Active Substance: PHENYTOIN
     Dosage: 100 MG, 1X/DAY
     Route: 048

REACTIONS (2)
  - Dysphemia [Unknown]
  - Product use issue [Unknown]
